FAERS Safety Report 18363961 (Version 2)
Quarter: 2020Q4

REPORT INFORMATION
  Report Type: Spontaneous
  Country: FR (occurrence: FR)
  Receive Date: 20201009
  Receipt Date: 20201028
  Transmission Date: 20210114
  Serious: Yes (Hospitalization)
  Sender: FDA-Public Use
  Company Number: FR-JNJFOC-20200953482

PATIENT
  Age: 68 Year
  Sex: Male
  Weight: 68 kg

DRUGS (6)
  1. IRBESARTAN. [Concomitant]
     Active Substance: IRBESARTAN
     Indication: HYPERTENSION
  2. METHOTREXATE. [Concomitant]
     Active Substance: METHOTREXATE
     Indication: CROHN^S DISEASE
  3. METHOTREXATE. [Concomitant]
     Active Substance: METHOTREXATE
     Indication: CROHN^S DISEASE
     Dosage: 1 WEEK
     Route: 065
     Dates: start: 201904
  4. STELARA [Suspect]
     Active Substance: USTEKINUMAB
     Indication: CROHN^S DISEASE
     Dosage: RECEIVED FOR FOR 6-8 MONTHS
     Route: 058
     Dates: start: 201811
  5. STELARA [Suspect]
     Active Substance: USTEKINUMAB
     Dosage: RECEIVED FOR FOR 6-8 MONTHS
     Route: 042
     Dates: start: 20181212, end: 201902
  6. SPECIAFOLDINE [Concomitant]
     Active Substance: FOLIC ACID
     Indication: CROHN^S DISEASE

REACTIONS (1)
  - Limbic encephalitis [Recovered/Resolved]

NARRATIVE: CASE EVENT DATE: 20190410
